FAERS Safety Report 7623142-6 (Version None)
Quarter: 2011Q3

REPORT INFORMATION
  Report Type: 
  Country: None (occurrence: None)
  Receive Date: 20110720
  Receipt Date: 20110707
  Transmission Date: 20111222
  Serious: Yes (Other)
  Sender: FDA-Public Use
  Company Number: PHHY2011US60266

PATIENT
  Age: 78 Year
  Sex: Female
  Weight: 68.934 kg

DRUGS (5)
  1. CLONAZEPAM [Concomitant]
     Dosage: 0.5 MG, HALF TABLET EVERY MORNING
  2. GENTEAL MILD LUBRICANT EYE DROPS [Suspect]
     Indication: DRY EYE
     Dosage: IN BOTH EYES AS NEEDED
     Route: 047
     Dates: start: 20110607
  3. ADVAIR DISKUS 100/50 [Concomitant]
     Dosage: UNK UKN, EVERY MORNING
  4. DIOVAN [Concomitant]
     Dosage: 160 MG, EVERYDAY
  5. SEROQUEL [Concomitant]
     Dosage: 25 MG, EVERY MORNING

REACTIONS (2)
  - DIZZINESS [None]
  - BLOOD PRESSURE INCREASED [None]
